FAERS Safety Report 5010913-8 (Version None)
Quarter: 2006Q2

REPORT INFORMATION
  Report Type: 
  Country: None (occurrence: None)
  Receive Date: 20060523
  Receipt Date: 20060510
  Transmission Date: 20061013
  Serious: Yes (Other)
  Sender: FDA-Public Use
  Company Number: 224909

PATIENT
  Age: 10 Year
  Sex: Male
  Weight: 35.6 kg

DRUGS (1)
  1. NUTROPIN AQ [Suspect]
     Indication: GROWTH HORMONE DEFICIENCY
     Dosage: 0.34 ML, 6/WEEK, SUBCUTANEOUS
     Route: 058
     Dates: start: 20010901

REACTIONS (1)
  - LOWER EXTREMITY MASS [None]
